FAERS Safety Report 13870396 (Version 1)
Quarter: 2017Q3

REPORT INFORMATION
  Report Type: Spontaneous
  Country: CN (occurrence: CN)
  Receive Date: 20170815
  Receipt Date: 20170815
  Transmission Date: 20171127
  Serious: Yes (Other)
  Sender: FDA-Public Use
  Company Number: CN-ABBVIE-17P-035-2071929-00

PATIENT
  Age: 19 Year
  Sex: Male

DRUGS (3)
  1. DEPAKINE CHRONO [Suspect]
     Active Substance: VALPROATE SODIUM
     Dosage: EXTENDED RELEASE
     Route: 048
     Dates: start: 20170807
  2. DEPAKINE CHRONO [Suspect]
     Active Substance: VALPROATE SODIUM
     Dosage: EXTENDED RELEASE
     Route: 048
     Dates: start: 2016
  3. DEPAKINE CHRONO [Suspect]
     Active Substance: VALPROATE SODIUM
     Indication: EPILEPSY
     Dosage: EXTENDED RELEASE
     Route: 048
     Dates: start: 2010, end: 2016

REACTIONS (12)
  - Bruxism [Recovered/Resolved]
  - Headache [Unknown]
  - Tic [Recovered/Resolved]
  - Screaming [Recovered/Resolved]
  - Loss of consciousness [Recovered/Resolved]
  - Nausea [Unknown]
  - Dry mouth [Unknown]
  - Abdominal pain upper [Unknown]
  - Intentional product misuse [Unknown]
  - Nasopharyngitis [Recovered/Resolved]
  - Epilepsy [Recovered/Resolved]
  - Weight increased [Not Recovered/Not Resolved]

NARRATIVE: CASE EVENT DATE: 2010
